FAERS Safety Report 20694713 (Version 1)
Quarter: 2022Q2

REPORT INFORMATION
  Report Type: Spontaneous
  Country: US (occurrence: None)
  Receive Date: 20220408
  Receipt Date: 20220408
  Transmission Date: 20220721
  Serious: No
  Sender: FDA-Public Use
  Company Number: None

PATIENT
  Age: 46 Year
  Sex: Female
  Weight: 85.5 kg

DRUGS (9)
  1. PAXLOVID [Suspect]
     Active Substance: NIRMATRELVIR\RITONAVIR
     Indication: COVID-19
     Dosage: FREQUENCY : TWICE A DAY;?
     Route: 048
     Dates: start: 20220406
  2. Metformin XR 500 mg 2x/day [Concomitant]
  3. Lisinopril 20 mg 1x/day [Concomitant]
  4. Spironolactone 25 mg 2x/day [Concomitant]
  5. Dulera 100 [Concomitant]
  6. Xopenex as needed [Concomitant]
  7. HERBALS\TURMERIC [Concomitant]
     Active Substance: HERBALS\TURMERIC
  8. Pre/prebiotic [Concomitant]
  9. VITAMINS [Concomitant]
     Active Substance: VITAMINS

REACTIONS (4)
  - Dysgeusia [None]
  - Body temperature decreased [None]
  - Physical product label issue [None]
  - Wrong schedule [None]

NARRATIVE: CASE EVENT DATE: 20220407
